FAERS Safety Report 12937620 (Version 1)
Quarter: 2016Q4

REPORT INFORMATION
  Report Type: Report from Study
  Country: None (occurrence: BR)
  Receive Date: 20161114
  Receipt Date: 20161114
  Transmission Date: 20170207
  Serious: Yes (Other)
  Sender: FDA-Public Use
  Company Number: BR-ABBVIE-16K-020-1776049-00

PATIENT
  Sex: Female
  Weight: 75 kg

DRUGS (2)
  1. HUMIRA [Suspect]
     Active Substance: ADALIMUMAB
     Indication: PSORIASIS
     Route: 058
     Dates: start: 20160813, end: 20161025
  2. VITAMIN D [Concomitant]
     Active Substance: CHOLECALCIFEROL
     Indication: POSTOPERATIVE CARE
     Route: 048
     Dates: start: 20161023

REACTIONS (3)
  - Nocturnal dyspnoea [Recovering/Resolving]
  - Headache [Recovering/Resolving]
  - Temporomandibular joint syndrome [Unknown]

NARRATIVE: CASE EVENT DATE: 2016
